FAERS Safety Report 21691838 (Version 2)
Quarter: 2023Q1

REPORT INFORMATION
  Report Type: Spontaneous
  Country: US (occurrence: US)
  Receive Date: 20221207
  Receipt Date: 20230220
  Transmission Date: 20230417
  Serious: No
  Sender: FDA-Public Use
  Company Number: US-TEVA-2022-US-2832145

PATIENT
  Age: 63 Year
  Sex: Male
  Weight: 63.5 kg

DRUGS (4)
  1. LORAZEPAM [Suspect]
     Active Substance: LORAZEPAM
     Indication: Anxiety
     Dosage: STRENGTH: 1 MG, 1 - 4 TIMES A DAY
     Route: 048
     Dates: end: 202211
  2. LORAZEPAM [Suspect]
     Active Substance: LORAZEPAM
     Indication: Dizziness
  3. LORAZEPAM [Suspect]
     Active Substance: LORAZEPAM
     Indication: Anxiety
     Dosage: FOR PAST 20 YEARS
  4. LORAZEPAM [Suspect]
     Active Substance: LORAZEPAM
     Indication: Dizziness

REACTIONS (8)
  - Illness [Not Recovered/Not Resolved]
  - Insomnia [Unknown]
  - Vertigo [Unknown]
  - Paraesthesia [Unknown]
  - Drug ineffective for unapproved indication [Unknown]
  - Nervousness [Unknown]
  - Product use in unapproved indication [Unknown]
  - Expired product administered [Unknown]

NARRATIVE: CASE EVENT DATE: 20221125
